APPROVED DRUG PRODUCT: LOTEMAX
Active Ingredient: LOTEPREDNOL ETABONATE
Strength: 0.5%
Dosage Form/Route: OINTMENT;OPHTHALMIC
Application: N200738 | Product #001
Applicant: BAUSCH AND LOMB INC
Approved: Apr 15, 2011 | RLD: Yes | RS: Yes | Type: RX